FAERS Safety Report 5947705-9 (Version None)
Quarter: 2008Q4

REPORT INFORMATION
  Report Type: 
  Country: None (occurrence: None)
  Receive Date: 20081110
  Receipt Date: 20081110
  Transmission Date: 20090506
  Serious: Yes (Hospitalization)
  Sender: FDA-Public Use
  Company Number: None

PATIENT
  Age: 32 Year
  Sex: Female
  Weight: 58.9676 kg

DRUGS (3)
  1. LAMOTRIGINE [Suspect]
     Indication: DRUG THERAPY CHANGED
     Dosage: 100MG DAILY PO
     Route: 048
     Dates: start: 20081027, end: 20081030
  2. NORTEL [Concomitant]
  3. LEVOTHYROXINE SODIUM [Concomitant]

REACTIONS (5)
  - CONVULSION [None]
  - INSOMNIA [None]
  - MALAISE [None]
  - MANIA [None]
  - THERAPEUTIC RESPONSE UNEXPECTED WITH DRUG SUBSTITUTION [None]
